FAERS Safety Report 12896322 (Version 2)
Quarter: 2020Q4

REPORT INFORMATION
  Report Type: Spontaneous
  Country: US (occurrence: US)
  Receive Date: 20161031
  Receipt Date: 20201027
  Transmission Date: 20210113
  Serious: No
  Sender: FDA-Public Use
  Company Number: US-JAZZ-2016-US-016419

PATIENT
  Sex: Female

DRUGS (32)
  1. PROCTOFOAM HC [Concomitant]
     Active Substance: HYDROCORTISONE ACETATE\PRAMOXINE HYDROCHLORIDE
  2. NUVIGIL [Concomitant]
     Active Substance: ARMODAFINIL
  3. MALARONE [Concomitant]
     Active Substance: ATOVAQUONE\PROGUANIL HYDROCHLORIDE
  4. PROPRANOLOL [PROPRANOLOL HYDROCHLORIDE] [Concomitant]
     Active Substance: PROPRANOLOL HYDROCHLORIDE
  5. TURMERIC [CURCUMA LONGA] [Concomitant]
     Active Substance: HERBALS\TURMERIC
  6. VITAMIN D3 [Concomitant]
     Active Substance: CHOLECALCIFEROL
  7. CARISOPRODOL. [Concomitant]
     Active Substance: CARISOPRODOL
  8. DILTIAZEM [DILTIAZEM HYDROCHLORIDE] [Concomitant]
     Active Substance: DILTIAZEM HYDROCHLORIDE
  9. FLUCONAZOLE. [Concomitant]
     Active Substance: FLUCONAZOLE
  10. ONDANSETRON [Concomitant]
     Active Substance: ONDANSETRON
  11. LOSARTAN POTASSIUM. [Concomitant]
     Active Substance: LOSARTAN POTASSIUM
  12. XYREM [Suspect]
     Active Substance: SODIUM OXYBATE
     Indication: NARCOLEPSY
     Dosage: 0.75 G, BID
     Route: 048
     Dates: start: 201504, end: 201504
  13. FLUOXETINE HCL [Concomitant]
     Active Substance: FLUOXETINE HYDROCHLORIDE
  14. FLUTICASONE [FLUTICASONE PROPIONATE] [Concomitant]
  15. MINOCYCLINE HCL [Concomitant]
     Active Substance: MINOCYCLINE HYDROCHLORIDE
  16. NYSTATIN. [Concomitant]
     Active Substance: NYSTATIN
  17. TOPAMAX [Concomitant]
     Active Substance: TOPIRAMATE
  18. MAGNESIUM [Concomitant]
     Active Substance: MAGNESIUM
  19. XYREM [Suspect]
     Active Substance: SODIUM OXYBATE
     Dosage: 1.75 G, BID
     Route: 048
     Dates: start: 201602
  20. NITRO-BID [Concomitant]
     Active Substance: NITROGLYCERIN
  21. NUCYNTA [Concomitant]
     Active Substance: TAPENTADOL HYDROCHLORIDE
  22. ALPHA LIPOIC ACID [Concomitant]
     Active Substance: .ALPHA.-LIPOIC ACID
  23. ACETAMINOPHEN;HYDROCODONE BITARTRATE [Concomitant]
  24. VITAMIN C [Concomitant]
     Active Substance: ASCORBIC ACID
  25. XYREM [Suspect]
     Active Substance: SODIUM OXYBATE
     Indication: CATAPLEXY
     Dosage: DOSE ADJUSTMENTS
     Route: 048
     Dates: start: 201504, end: 201602
  26. KEPPRA [Concomitant]
     Active Substance: LEVETIRACETAM
  27. LAMICTAL [Concomitant]
     Active Substance: LAMOTRIGINE
  28. VITAMIN B METHYLATED [Concomitant]
  29. OMEGA 3 FISH OIL [FISH OIL] [Concomitant]
  30. CLONAZEPAM. [Concomitant]
     Active Substance: CLONAZEPAM
  31. NAPROXEN. [Concomitant]
     Active Substance: NAPROXEN
  32. ATIVAN [Concomitant]
     Active Substance: LORAZEPAM

REACTIONS (1)
  - Therapeutic response unexpected [Unknown]
